FAERS Safety Report 6628689-7 (Version None)
Quarter: 2010Q1

REPORT INFORMATION
  Report Type: 
  Country: None (occurrence: None)
  Receive Date: 20100225
  Receipt Date: 20090127
  Transmission Date: 20100710
  Serious: Yes (Other)
  Sender: FDA-Public Use
  Company Number: 596098

PATIENT
  Age: 17 Year
  Sex: Male
  Weight: 79.4 kg

DRUGS (4)
  1. ACCUTANE [Suspect]
     Indication: ACNE
     Dosage: 40 MG 2 PER DAY ORAL
     Route: 048
     Dates: start: 20000316, end: 20000810
  2. ADDERALL 10 [Concomitant]
  3. MINOCIN [Concomitant]
  4. E-MYCIN (ERYTHROMYCIN) [Concomitant]

REACTIONS (5)
  - COLITIS ULCERATIVE [None]
  - HYPERCHOLESTEROLAEMIA [None]
  - HYPERKALAEMIA [None]
  - HYPERTRIGLYCERIDAEMIA [None]
  - INFLAMMATORY BOWEL DISEASE [None]
